FAERS Safety Report 5841601-3 (Version None)
Quarter: 2008Q3

REPORT INFORMATION
  Report Type: 
  Country: None (occurrence: None)
  Receive Date: 20080812
  Receipt Date: 20080806
  Transmission Date: 20090109
  Serious: Yes (Hospitalization)
  Sender: FDA-Public Use
  Company Number: DE-WYE-G01817108

PATIENT
  Sex: Female
  Weight: 78 kg

DRUGS (4)
  1. TREVILOR RETARD [Suspect]
     Dosage: AMOUNT UNKNOWN
     Route: 048
     Dates: start: 20080703, end: 20080703
  2. TRILEPTAL [Suspect]
     Dosage: AMOUNT UNKNOWN
     Route: 048
     Dates: start: 20080703, end: 20080703
  3. ALCOHOL [Suspect]
     Dosage: AMOUNT UNKNOWN
     Route: 048
     Dates: start: 20080703, end: 20080703
  4. ALCOHOL [Suspect]
     Dosage: UNKNOWN
     Route: 048

REACTIONS (2)
  - COMA [None]
  - DRUG ABUSE [None]
